FAERS Safety Report 5485272-7 (Version None)
Quarter: 2007Q4

REPORT INFORMATION
  Report Type: 
  Country: None (occurrence: None)
  Receive Date: 20071010
  Receipt Date: 20071010
  Transmission Date: 20080405
  Serious: No
  Sender: FDA-Public Use
  Company Number: None

PATIENT

DRUGS (1)
  1. MIDAZOLAM HCL [Suspect]
     Indication: SURGERY
     Dosage: 2MG/ML IV
     Route: 042
     Dates: start: 20071009, end: 20071009

REACTIONS (1)
  - PHARMACEUTICAL PRODUCT COMPLAINT [None]
